FAERS Safety Report 7702629-1 (Version None)
Quarter: 2011Q3

REPORT INFORMATION
  Report Type: 
  Country: None (occurrence: None)
  Receive Date: 20110823
  Receipt Date: 20110811
  Transmission Date: 20111222
  Serious: Yes (Other)
  Sender: FDA-Public Use
  Company Number: US-AMGEN-USASP2011041040

PATIENT
  Sex: Female

DRUGS (2)
  1. ENBREL [Suspect]
     Indication: RHEUMATOID ARTHRITIS
     Dosage: 50 MG, QWK
     Dates: start: 20110501
  2. ENBREL [Suspect]
     Indication: PSORIASIS

REACTIONS (8)
  - MALAISE [None]
  - PSORIASIS [None]
  - INJECTION SITE PAIN [None]
  - BLOOD GLUCOSE ABNORMAL [None]
  - FIBROMYALGIA [None]
  - DIZZINESS [None]
  - COLD SWEAT [None]
  - NAUSEA [None]
